FAERS Safety Report 19743749 (Version 1)
Quarter: 2021Q3

REPORT INFORMATION
  Report Type: Spontaneous
  Country: US (occurrence: US)
  Receive Date: 20210823
  Receipt Date: 20210823
  Transmission Date: 20211014
  Serious: No
  Sender: FDA-Public Use
  Company Number: None

PATIENT
  Sex: Female

DRUGS (1)
  1. HUMIRA [Suspect]
     Active Substance: ADALIMUMAB
     Indication: IRIDOCYCLITIS
     Route: 058
     Dates: start: 20190731

REACTIONS (7)
  - Headache [None]
  - Infection [None]
  - Nausea [None]
  - Drug ineffective [None]
  - Multiple sclerosis [None]
  - Inflammation [None]
  - Fatigue [None]
